FAERS Safety Report 9912439 (Version 7)
Quarter: 2014Q2

REPORT INFORMATION
  Report Type: Spontaneous
  Country: JP (occurrence: JP)
  Receive Date: 20140220
  Receipt Date: 20140603
  Transmission Date: 20141212
  Serious: Yes (Death, Hospitalization)
  Sender: FDA-Public Use
  Company Number: JP-BRISTOL-MYERS SQUIBB COMPANY-20075578

PATIENT
  Age: 75 Year
  Sex: Male
  Weight: 55.2 kg

DRUGS (4)
  1. ELIQUIS [Suspect]
     Indication: ATRIAL FIBRILLATION
     Route: 048
     Dates: start: 20131011, end: 20140112
  2. OLMESARTAN MEDOXOMIL [Concomitant]
     Indication: HYPERTENSION
     Route: 048
     Dates: end: 20140112
  3. DUTASTERIDE [Concomitant]
     Indication: BENIGN PROSTATIC HYPERPLASIA
     Dates: end: 20140112
  4. MYSLEE [Concomitant]
     Indication: INSOMNIA
     Dates: end: 20140112

REACTIONS (4)
  - Disseminated intravascular coagulation [Fatal]
  - Multi-organ failure [Fatal]
  - Gastrointestinal haemorrhage [Fatal]
  - Anaemia [Fatal]
